FAERS Safety Report 7574652-1 (Version None)
Quarter: 2011Q2

REPORT INFORMATION
  Report Type: 
  Country: None (occurrence: None)
  Receive Date: 20110627
  Receipt Date: 20110616
  Transmission Date: 20111010
  Serious: Yes (Death, Hospitalization, Other)
  Sender: FDA-Public Use
  Company Number: US-BAXTER-2011BH016677

PATIENT
  Sex: Male

DRUGS (1)
  1. DIANEAL [Suspect]
     Indication: PERITONEAL DIALYSIS
     Route: 033
     Dates: end: 20110615

REACTIONS (5)
  - CARDIAC DISORDER [None]
  - NEOPLASM MALIGNANT [None]
  - PLEURAL EFFUSION [None]
  - RENAL CANCER METASTATIC [None]
  - LUNG NEOPLASM MALIGNANT [None]
